FAERS Safety Report 6344434-7 (Version None)
Quarter: 2009Q3

REPORT INFORMATION
  Report Type: 
  Country: None (occurrence: None)
  Receive Date: 20090908
  Receipt Date: 20090831
  Transmission Date: 20100115
  Serious: Yes (Other)
  Sender: FDA-Public Use
  Company Number: PHHY2009BR17537

PATIENT
  Age: 19 Year
  Sex: Female

DRUGS (4)
  1. TRILEPTAL [Suspect]
     Indication: CONVULSION
     Dosage: 600 MG, 2 TABLETS DAILY
     Route: 048
     Dates: start: 20040101, end: 20090401
  2. TRILEPTAL [Suspect]
     Dosage: 2 TABLETS AND A HALF DAILY
     Dates: start: 20090401, end: 20090501
  3. GARDENAL [Suspect]
     Indication: CONVULSION
     Dosage: 100 MG, 1 TABLET AND A HALF DAILY
     Dates: start: 19930101
  4. OXCARBAZEPINE [Suspect]
     Dosage: 600 MG, 2 TABLETS AND A HALF DAILY
     Dates: start: 20090401

REACTIONS (4)
  - BLISTER [None]
  - CONVULSION [None]
  - SKIN EXFOLIATION [None]
  - SURGERY [None]
